FAERS Safety Report 6888033-7 (Version None)
Quarter: 2010Q3

REPORT INFORMATION
  Report Type: 
  Country: None (occurrence: None)
  Receive Date: 20100730
  Receipt Date: 20100720
  Transmission Date: 20110219
  Serious: Yes (Other)
  Sender: FDA-Public Use
  Company Number: B0667216A

PATIENT
  Age: 70 Year
  Sex: Male

DRUGS (2)
  1. ARYTHMOL [Suspect]
     Indication: PRODUCT USED FOR UNKNOWN INDICATION
     Dosage: 300MG PER DAY
     Route: 048
  2. LOSARTAN POSTASSIUM [Concomitant]

REACTIONS (4)
  - CARDIAC ASSISTANCE DEVICE USER [None]
  - DIZZINESS [None]
  - HYPERTENSION [None]
  - HYPOTENSION [None]
